FAERS Safety Report 10020585 (Version 1)
Quarter: 2014Q1

REPORT INFORMATION
  Report Type: Spontaneous
  Country: FR (occurrence: FR)
  Receive Date: 20140319
  Receipt Date: 20140319
  Transmission Date: 20141002
  Serious: Yes (Hospitalization)
  Sender: FDA-Public Use
  Company Number: 2014SP001530

PATIENT
  Age: 66 Year
  Sex: Male

DRUGS (6)
  1. FLUOROURACIL [Suspect]
     Indication: PRODUCT USED FOR UNKNOWN INDICATION
     Route: 051
     Dates: start: 20131202
  2. FLUOROURACIL [Suspect]
     Indication: PRODUCT USED FOR UNKNOWN INDICATION
     Route: 051
     Dates: start: 20131227
  3. FLUOROURACIL [Suspect]
     Indication: PRODUCT USED FOR UNKNOWN INDICATION
     Route: 051
     Dates: start: 20131112
  4. CARBOPLATIN [Suspect]
     Indication: CHEMOTHERAPY
     Route: 051
     Dates: start: 20131202
  5. CARBOPLATIN [Suspect]
     Indication: CHEMOTHERAPY
     Route: 051
     Dates: start: 20131227
  6. CARBOPLATIN [Suspect]
     Indication: CHEMOTHERAPY
     Route: 051
     Dates: start: 20131112

REACTIONS (2)
  - Hypersensitivity vasculitis [Recovered/Resolved]
  - Purpura [Recovered/Resolved]
